FAERS Safety Report 19827116 (Version 1)
Quarter: 2021Q3

REPORT INFORMATION
  Report Type: Spontaneous
  Country: US (occurrence: US)
  Receive Date: 20210914
  Receipt Date: 20210914
  Transmission Date: 20211014
  Serious: No
  Sender: FDA-Public Use
  Company Number: None

PATIENT
  Age: 66 Year
  Sex: Female
  Weight: 67.5 kg

DRUGS (8)
  1. ALENDRONATE SODIUM. [Concomitant]
     Active Substance: ALENDRONATE SODIUM
  2. VITAMIN C [Concomitant]
     Active Substance: ASCORBIC ACID
  3. WOMEN^S VITA FUSION MULTIVITAMIN [Concomitant]
  4. LEVOTHYROXINE SODIUM 25 MCG ORAL [Suspect]
     Active Substance: LEVOTHYROXINE SODIUM
     Indication: HYPOTHYROIDISM
     Route: 048
     Dates: start: 20210729, end: 20210820
  5. VIT D [Concomitant]
     Active Substance: VITAMIN D NOS
  6. INSULIN PUMP [Concomitant]
     Active Substance: DEVICE\INSULIN NOS
  7. INSULIN [Concomitant]
     Active Substance: INSULIN NOS
  8. CALCIUM D3 [Concomitant]
     Active Substance: CALCIUM\CHOLECALCIFEROL

REACTIONS (1)
  - Headache [None]

NARRATIVE: CASE EVENT DATE: 20210729
